FAERS Safety Report 9678275 (Version 1)
Quarter: 2013Q4

REPORT INFORMATION
  Report Type: Spontaneous
  Country: IN (occurrence: IN)
  Receive Date: 20131108
  Receipt Date: 20131108
  Transmission Date: 20140711
  Serious: Yes (Other)
  Sender: FDA-Public Use
  Company Number: IN-PFIZER INC-2013316761

PATIENT
  Sex: Female

DRUGS (1)
  1. MINIPRESS XL [Suspect]

REACTIONS (2)
  - Pericardial effusion [Unknown]
  - Blood pressure inadequately controlled [Unknown]
